FAERS Safety Report 26044358 (Version 1)
Quarter: 2025Q4

REPORT INFORMATION
  Report Type: Spontaneous
  Country: EU (occurrence: EU)
  Receive Date: 20251114
  Receipt Date: 20251114
  Transmission Date: 20260118
  Serious: Yes (Hospitalization)
  Sender: ABBVIE
  Company Number: EU-ABBVIE-6546188

PATIENT
  Age: 70 Year
  Sex: Female

DRUGS (5)
  1. MIRVETUXIMAB SORAVTANSINE-GYNX [Suspect]
     Active Substance: MIRVETUXIMAB SORAVTANSINE-GYNX
     Indication: Ovarian cancer
     Dosage: CYCLE 1
     Route: 042
  2. MIRVETUXIMAB SORAVTANSINE-GYNX [Suspect]
     Active Substance: MIRVETUXIMAB SORAVTANSINE-GYNX
     Indication: Ovarian cancer
     Dosage: CYCLE 2
     Route: 042
  3. MIRVETUXIMAB SORAVTANSINE-GYNX [Suspect]
     Active Substance: MIRVETUXIMAB SORAVTANSINE-GYNX
     Indication: Ovarian cancer
     Dosage: CYCLE 3
     Route: 042
  4. AVASTIN [Suspect]
     Active Substance: BEVACIZUMAB
     Indication: Arthritis
     Route: 065
  5. DOXORUBICIN HYDROCHLORIDE [Concomitant]
     Active Substance: DOXORUBICIN HYDROCHLORIDE
     Indication: Product used for unknown indication

REACTIONS (6)
  - Pulmonary fibrosis [Unknown]
  - Pneumonitis [Unknown]
  - Fatigue [Unknown]
  - Gastrointestinal disorder [Unknown]
  - Diarrhoea [Unknown]
  - Arthritis [Unknown]

NARRATIVE: CASE EVENT DATE: 20230101
